FAERS Safety Report 19605627 (Version 1)
Quarter: 2021Q3

REPORT INFORMATION
  Report Type: Report from Study
  Country: US (occurrence: US)
  Receive Date: 20210723
  Receipt Date: 20210723
  Transmission Date: 20211014
  Serious: Yes (Hospitalization)
  Sender: FDA-Public Use
  Company Number: US-TG THERAPEUTICS INC.-TGT002010

PATIENT
  Age: 87 Year
  Sex: Male
  Weight: 75.92 kg

DRUGS (3)
  1. UMBRALISIB [Suspect]
     Active Substance: UMBRALISIB
     Indication: MARGINAL ZONE LYMPHOMA
     Dosage: 800 MILLIGRAM, QD
     Route: 048
     Dates: start: 202103
  2. CALCIUM [Concomitant]
     Active Substance: CALCIUM
     Dosage: UNK
     Route: 048
  3. INSULIN [Concomitant]
     Active Substance: INSULIN NOS
     Indication: DIABETES MELLITUS

REACTIONS (6)
  - Dizziness [Unknown]
  - Nausea [Unknown]
  - Rash [Unknown]
  - Hypoglycaemia [Unknown]
  - Therapeutic response unexpected [Unknown]
  - Presyncope [Unknown]

NARRATIVE: CASE EVENT DATE: 202103
